FAERS Safety Report 6203510-X (Version None)
Quarter: 2009Q2

REPORT INFORMATION
  Report Type: 
  Country: None (occurrence: None)
  Receive Date: 20090527
  Receipt Date: 20090519
  Transmission Date: 20091009
  Serious: Yes (Hospitalization)
  Sender: FDA-Public Use
  Company Number: PHHO2009IN06270

PATIENT
  Sex: Female
  Weight: 61.5 kg

DRUGS (4)
  1. DICLOFENAC SODIUM [Suspect]
     Indication: OSTEOARTHRITIS
     Dosage: 100 MG, QD
     Route: 048
     Dates: start: 20000101, end: 20090519
  2. BLINDED LAF237 LAF237+TAB [Suspect]
     Indication: TYPE 2 DIABETES MELLITUS
     Dosage: CODE NOT BROKEN
     Route: 048
     Dates: start: 20081117
  3. BLINDED NO TREATMENT RECEIVED NOMED [Suspect]
     Indication: TYPE 2 DIABETES MELLITUS
     Dosage: CODE NOT BROKEN
     Route: 048
     Dates: start: 20081117
  4. BLINDED PLACEBO COMP-PLA+ [Suspect]
     Indication: TYPE 2 DIABETES MELLITUS
     Dosage: CODE NOT BROKEN
     Route: 048
     Dates: start: 20081117

REACTIONS (2)
  - GASTRIC ULCER [None]
  - VOMITING [None]
